FAERS Safety Report 24023179 (Version 2)
Quarter: 2024Q3

REPORT INFORMATION
  Report Type: Report from Study
  Country: TR (occurrence: TR)
  Receive Date: 20240627
  Receipt Date: 20240710
  Transmission Date: 20241017
  Serious: No
  Sender: ROCHE
  Company Number: TR-ROCHE-3518085

PATIENT
  Age: 84 Year
  Sex: Female

DRUGS (7)
  1. ALECTINIB [Suspect]
     Active Substance: ALECTINIB
     Indication: Non-small cell lung cancer metastatic
     Route: 048
     Dates: start: 20220204
  2. CORTAIR [Concomitant]
     Indication: Dyspnoea
     Route: 042
     Dates: start: 20240219, end: 20240222
  3. IPRAVENT (TURKEY) [Concomitant]
     Route: 042
     Dates: start: 20240219, end: 20240222
  4. VENTOFOR COMBI FIX [Concomitant]
     Route: 048
     Dates: start: 20240220
  5. NORVASC [Concomitant]
     Active Substance: AMLODIPINE BESYLATE
     Route: 048
     Dates: start: 20240222
  6. FUROMIDE [Concomitant]
     Route: 042
     Dates: start: 20240219, end: 20240222
  7. ALECTINIB [Concomitant]
     Active Substance: ALECTINIB
     Dates: start: 20190328

REACTIONS (1)
  - Blood urea increased [Not Recovered/Not Resolved]

NARRATIVE: CASE EVENT DATE: 20240216
